FAERS Safety Report 7719290-2 (Version None)
Quarter: 2011Q3

REPORT INFORMATION
  Report Type: 
  Country: None (occurrence: None)
  Receive Date: 20110830
  Receipt Date: 20110823
  Transmission Date: 20111222
  Serious: Yes (Other)
  Sender: FDA-Public Use
  Company Number: GB-JNJFOC-20110811031

PATIENT
  Age: 20 Year
  Sex: Female

DRUGS (2)
  1. AZATHIOPRINE [Concomitant]
  2. INFLIXIMAB, RECOMBINANT [Suspect]
     Indication: CROHN'S DISEASE
     Route: 042
     Dates: start: 20061201, end: 20090601

REACTIONS (2)
  - DRUG TOLERANCE [None]
  - FISTULA [None]
